FAERS Safety Report 7011799-2 (Version None)
Quarter: 2010Q3

REPORT INFORMATION
  Report Type: 
  Country: None (occurrence: None)
  Receive Date: 20100923
  Receipt Date: 20090520
  Transmission Date: 20110219
  Serious: No
  Sender: FDA-Public Use
  Company Number: US-WYE-H09451809

PATIENT
  Sex: Female

DRUGS (2)
  1. ADVIL COLD AND SINUS [Suspect]
     Indication: NASOPHARYNGITIS
     Route: 048
     Dates: start: 20090519, end: 20090519
  2. ADVIL COLD AND SINUS [Suspect]
     Indication: SINUS CONGESTION
     Dosage: 2 CAPLETS
     Route: 048
     Dates: start: 20090520

REACTIONS (1)
  - SWELLING [None]
